FAERS Safety Report 13243694 (Version 2)
Quarter: 2017Q1

REPORT INFORMATION
  Report Type: Spontaneous
  Country: TN (occurrence: TN)
  Receive Date: 20170216
  Receipt Date: 20170222
  Transmission Date: 20170428
  Serious: Yes (Other)
  Sender: FDA-Public Use
  Company Number: TN-ALLERGAN-1682338US

PATIENT
  Age: 46 Year
  Sex: Female
  Weight: 52 kg

DRUGS (2)
  1. BOTOX [Suspect]
     Active Substance: ONABOTULINUMTOXINA
     Indication: SKIN WRINKLING
  2. BOTOX [Suspect]
     Active Substance: ONABOTULINUMTOXINA
     Indication: SKIN WRINKLING
     Dosage: 40 UNITS, SINGLE
     Route: 030
     Dates: start: 20160501, end: 20160501

REACTIONS (20)
  - Parosmia [Recovered/Resolved with Sequelae]
  - Depression [Unknown]
  - Alopecia [Recovered/Resolved with Sequelae]
  - Nausea [Unknown]
  - Ear discomfort [Unknown]
  - Pain in extremity [Unknown]
  - Facial pain [Recovered/Resolved with Sequelae]
  - Paraesthesia [Unknown]
  - Suicidal ideation [Unknown]
  - Monoplegia [Unknown]
  - Anger [Unknown]
  - Musculoskeletal stiffness [Unknown]
  - Iron metabolism disorder [Unknown]
  - Food intolerance [Recovered/Resolved with Sequelae]
  - Headache [Unknown]
  - Myalgia [Recovered/Resolved with Sequelae]
  - Raynaud^s phenomenon [Recovered/Resolved with Sequelae]
  - Acne [Recovered/Resolved with Sequelae]
  - Vertigo [Unknown]
  - Muscular weakness [Unknown]
